FAERS Safety Report 17670913 (Version 1)
Quarter: 2020Q2

REPORT INFORMATION
  Report Type: Report from Study
  Country: US (occurrence: US)
  Receive Date: 20200415
  Receipt Date: 20200415
  Transmission Date: 20200713
  Serious: Yes (Death)
  Sender: FDA-Public Use
  Company Number: US-PFIZER INC-2020152991

PATIENT
  Sex: Male

DRUGS (1)
  1. DOCETAXEL. [Suspect]
     Active Substance: DOCETAXEL
     Indication: PROSTATE CANCER
     Dosage: 35 MG/M2, CYCLIC (35 MG/M2 D1, D8 AND D15 EVERY MONTH FOR 6 MONTHS)

REACTIONS (1)
  - Intestinal perforation [Fatal]
